FAERS Safety Report 12578193 (Version 4)
Quarter: 2016Q4

REPORT INFORMATION
  Report Type: Spontaneous
  Country: US (occurrence: US)
  Receive Date: 20160721
  Receipt Date: 20161027
  Transmission Date: 20170207
  Serious: Yes (Other)
  Sender: FDA-Public Use
  Company Number: US-TEVA-672599USA

PATIENT
  Age: 38 Year
  Sex: Male

DRUGS (5)
  1. PROVIDUAL [Concomitant]
  2. METROPINAUL [Concomitant]
  3. ZECUITY [Suspect]
     Active Substance: SUMATRIPTAN SUCCINATE
     Indication: HEADACHE
     Route: 062
     Dates: start: 20160616, end: 20160616
  4. ZECUITY [Suspect]
     Active Substance: SUMATRIPTAN SUCCINATE
     Route: 062
     Dates: start: 201605, end: 201605
  5. MAXAL [Concomitant]

REACTIONS (18)
  - Application site discolouration [Not Recovered/Not Resolved]
  - Application site burn [Recovered/Resolved]
  - Application site pain [Unknown]
  - Application site pruritus [Not Recovered/Not Resolved]
  - Administration site urticaria [Recovered/Resolved]
  - Administration site erosion [Recovered/Resolved]
  - Application site exfoliation [Recovered/Resolved]
  - Incorrect drug administration duration [Unknown]
  - Application site papules [Recovered/Resolved]
  - Incorrect drug administration duration [Unknown]
  - Product adhesion issue [Unknown]
  - Administration site pain [Recovered/Resolved]
  - Application site erythema [Not Recovered/Not Resolved]
  - Product leakage [Unknown]
  - Application site irritation [Recovered/Resolved]
  - Application site vesicles [Recovered/Resolved]
  - Product adhesion issue [Unknown]
  - Application site discomfort [Recovered/Resolved]

NARRATIVE: CASE EVENT DATE: 201605
